FAERS Safety Report 5255842-X (Version None)
Quarter: 2007Q1

REPORT INFORMATION
  Report Type: 
  Country: None (occurrence: None)
  Receive Date: 20070301
  Receipt Date: 20070222
  Transmission Date: 20070707
  Serious: Yes (Life-Threatening, Hospitalization, Disabling, Other)
  Sender: FDA-Public Use
  Company Number: OSCN-UK-0702S-0092

PATIENT
  Age: 67 Year
  Sex: Male

DRUGS (1)
  1. OMNISCAN [Suspect]
     Indication: DRUG USE FOR UNKNOWN INDICATION
     Dosage: 30 ML, SINGLE DOSE, I.V.
     Route: 042
     Dates: start: 19990121, end: 19990121

REACTIONS (1)
  - NEPHROGENIC FIBROSING DERMOPATHY [None]
